FAERS Safety Report 17255851 (Version 1)
Quarter: 2020Q1

REPORT INFORMATION
  Report Type: Spontaneous
  Country: US (occurrence: US)
  Receive Date: 20200110
  Receipt Date: 20200110
  Transmission Date: 20200409
  Serious: Yes (Hospitalization)
  Sender: FDA-Public Use
  Company Number: US-TEVA-2019-US-1061240

PATIENT
  Age: 65 Year
  Sex: Female

DRUGS (1)
  1. COPAXONE [Suspect]
     Active Substance: GLATIRAMER ACETATE
     Dosage: 2 DOSES OF COPAXONE 20MG TO MAKE 40MG DOSE

REACTIONS (2)
  - Hospitalisation [Unknown]
  - Product dispensing error [Unknown]

NARRATIVE: CASE EVENT DATE: 201906
